FAERS Safety Report 6284188-6 (Version None)
Quarter: 2009Q3

REPORT INFORMATION
  Report Type: 
  Country: None (occurrence: None)
  Receive Date: 20090727
  Receipt Date: 20090625
  Transmission Date: 20100115
  Serious: No
  Sender: FDA-Public Use
  Company Number: US-BAYER-200924950NA

PATIENT
  Age: 72 Year
  Sex: Female

DRUGS (1)
  1. CIPRO [Suspect]
     Indication: SINUSITIS
     Dates: start: 20090527, end: 20090601

REACTIONS (1)
  - NAUSEA [None]
